APPROVED DRUG PRODUCT: RITONAVIR
Active Ingredient: RITONAVIR
Strength: 100MG
Dosage Form/Route: CAPSULE;ORAL
Application: A205801 | Product #001
Applicant: HIKMA PHARMACEUTICALS USA INC
Approved: Dec 3, 2020 | RLD: No | RS: No | Type: DISCN